FAERS Safety Report 16545232 (Version 1)
Quarter: 2019Q3

REPORT INFORMATION
  Report Type: Spontaneous
  Country: CN (occurrence: CN)
  Receive Date: 20190709
  Receipt Date: 20190709
  Transmission Date: 20191004
  Serious: Yes (Other)
  Sender: FDA-Public Use
  Company Number: CN-UCBSA-2019028735

PATIENT
  Age: 73 Year
  Sex: Male
  Weight: 65 kg

DRUGS (2)
  1. SODIUM VALPROATE [Suspect]
     Active Substance: VALPROATE SODIUM
     Indication: EPILEPSY
     Dosage: 0.4 GRAM, 3X/DAY (TID)
     Route: 048
     Dates: start: 20190425, end: 20190521
  2. KEPPRA [Suspect]
     Active Substance: LEVETIRACETAM
     Indication: EPILEPSY
     Dosage: 0.5 GRAM, 2X/DAY (BID)
     Route: 048
     Dates: start: 20190425, end: 20190521

REACTIONS (2)
  - Cerebral haemorrhage [Recovering/Resolving]
  - Blood test abnormal [Recovering/Resolving]

NARRATIVE: CASE EVENT DATE: 20190503
